FAERS Safety Report 21292613 (Version 3)
Quarter: 2022Q4

REPORT INFORMATION
  Report Type: Spontaneous
  Country: JP (occurrence: JP)
  Receive Date: 20220905
  Receipt Date: 20221027
  Transmission Date: 20230113
  Serious: Yes (Hospitalization, Other)
  Sender: FDA-Public Use
  Company Number: JP-AMGEN-JPNSP2022150719

PATIENT
  Age: 81 Year
  Sex: Female

DRUGS (1)
  1. EVENITY [Suspect]
     Active Substance: ROMOSOZUMAB-AQQG
     Indication: Osteoporosis
     Dosage: 210 MILLIGRAM, QMO
     Route: 058
     Dates: start: 20220114, end: 20220730

REACTIONS (1)
  - Angina pectoris [Recovered/Resolved]

NARRATIVE: CASE EVENT DATE: 20220801
